FAERS Safety Report 7931273-6 (Version None)
Quarter: 2011Q4

REPORT INFORMATION
  Report Type: 
  Country: None (occurrence: None)
  Receive Date: 20111118
  Receipt Date: 20111118
  Transmission Date: 20120403
  Serious: Yes (Life-Threatening, Hospitalization)
  Sender: FDA-Public Use
  Company Number: None

PATIENT
  Age: 22 Year
  Sex: Female
  Weight: 72.5755 kg

DRUGS (2)
  1. KARIVA [Suspect]
     Indication: CONTRACEPTION
     Dosage: 1 PILL DAILY ORAL
     Route: 048
     Dates: start: 20110324, end: 20110830
  2. WARFARIN SODIUM [Concomitant]

REACTIONS (2)
  - PULMONARY EMBOLISM [None]
  - MUSCLE SPASMS [None]
